FAERS Safety Report 4409726-7 (Version None)
Quarter: 2004Q3

REPORT INFORMATION
  Report Type: 
  Country: None (occurrence: None)
  Receive Date: 20040723
  Receipt Date: 20040708
  Transmission Date: 20050211
  Serious: Yes (Hospitalization)
  Sender: FDA-Public Use
  Company Number: US-SHR-04-023971

PATIENT
  Age: 64 Year
  Sex: Female

DRUGS (5)
  1. BETASERON [Suspect]
     Indication: MULTIPLE SCLEROSIS
     Dosage: 8 MIU, EVERY 2D, SUBCUTANEOUS
     Route: 058
     Dates: start: 20010821
  2. CORTICOSTEROIDS [Suspect]
     Indication: MULTIPLE SCLEROSIS
  3. METHADONE HCL [Concomitant]
  4. XANAX [Concomitant]
  5. NEURONTIN [Concomitant]

REACTIONS (12)
  - BLOOD POTASSIUM DECREASED [None]
  - BRONCHOPULMONARY ASPERGILLOSIS [None]
  - CONDITION AGGRAVATED [None]
  - MULTIPLE SCLEROSIS [None]
  - PNEUMONIA [None]
  - PROCEDURAL COMPLICATION [None]
  - RENAL CYST [None]
  - ROTATOR CUFF SYNDROME [None]
  - SINUSITIS [None]
  - SPONDYLOLISTHESIS ACQUIRED [None]
  - STEROID THERAPY [None]
  - VISUAL DISTURBANCE [None]
